FAERS Safety Report 16760080 (Version 2)
Quarter: 2019Q3

REPORT INFORMATION
  Report Type: Spontaneous
  Country: JP (occurrence: JP)
  Receive Date: 20190830
  Receipt Date: 20190930
  Transmission Date: 20191005
  Serious: Yes (Death)
  Sender: FDA-Public Use
  Company Number: JP-JT-EVA201902848KERYXP-001

PATIENT
  Age: 90 Year
  Sex: Female

DRUGS (3)
  1. RIONA [Suspect]
     Active Substance: FERRIC CITRATE ANHYDROUS
     Indication: HYPERPHOSPHATAEMIA
     Dosage: 500 MILLIGRAM, Q8H
     Route: 048
     Dates: start: 201903, end: 201908
  2. FOSRENOL [Concomitant]
     Active Substance: LANTHANUM CARBONATE
     Indication: HYPERPHOSPHATAEMIA
     Dosage: 250 MILLIGRAM, Q8H
     Route: 048
     Dates: start: 201707, end: 201908
  3. FUROSEMIDE. [Concomitant]
     Active Substance: FUROSEMIDE
     Indication: HYPERTENSION
     Dosage: 40 MILLIGRAM, QD
     Route: 048

REACTIONS (1)
  - Cardiac failure [Fatal]

NARRATIVE: CASE EVENT DATE: 201908
